FAERS Safety Report 21761874 (Version 1)
Quarter: 2022Q4

REPORT INFORMATION
  Report Type: Spontaneous
  Country: FR (occurrence: FR)
  Receive Date: 20221221
  Receipt Date: 20221221
  Transmission Date: 20230113
  Serious: Yes (Hospitalization)
  Sender: FDA-Public Use
  Company Number: None

PATIENT
  Age: 55 Year
  Sex: Female

DRUGS (3)
  1. OMEPRAZOLE [Suspect]
     Active Substance: OMEPRAZOLE
     Indication: Helicobacter infection
     Dosage: 40 MG, QD
     Route: 048
     Dates: start: 20220707, end: 20220717
  2. PYLERA [Suspect]
     Active Substance: BISMUTH SUBCITRATE POTASSIUM\METRONIDAZOLE\TETRACYCLINE HYDROCHLORIDE
     Indication: Helicobacter infection
     Dosage: 10 DOSAGE FORM, QD (140 MG/125 MG/125 MG)
     Route: 048
     Dates: start: 20220707, end: 20220717
  3. BUDESONIDE [Concomitant]
     Active Substance: BUDESONIDE
     Indication: Colitis
     Dosage: 9 MG, QD (3 GEL/J PENDANT 8 SEMAINES2 GEL/J PENDANT 4 SEMAINES 1 GEL/J PENDANT 2 SEMAINES)
     Route: 048
     Dates: start: 20220707

REACTIONS (1)
  - Mixed liver injury [Recovered/Resolved]

NARRATIVE: CASE EVENT DATE: 20220811
